FAERS Safety Report 12748094 (Version 1)
Quarter: 2016Q3

REPORT INFORMATION
  Report Type: Spontaneous
  Country: US (occurrence: US)
  Receive Date: 20160915
  Receipt Date: 20160915
  Transmission Date: 20161109
  Serious: No
  Sender: FDA-Public Use
  Company Number: US-ASTELLAS-2016US005723

PATIENT
  Age: 82 Year
  Sex: Male

DRUGS (1)
  1. XTANDI [Suspect]
     Active Substance: ENZALUTAMIDE
     Indication: HORMONE-REFRACTORY PROSTATE CANCER
     Route: 048
     Dates: start: 20160107, end: 20160215

REACTIONS (10)
  - Fatigue [Unknown]
  - Sensation of foreign body [Not Recovered/Not Resolved]
  - Peripheral swelling [Unknown]
  - Nausea [Recovered/Resolved]
  - Decreased appetite [Not Recovered/Not Resolved]
  - Dysgeusia [Recovered/Resolved]
  - Eye contusion [Recovered/Resolved]
  - Dysphagia [Unknown]
  - Dizziness [Not Recovered/Not Resolved]
  - Fall [Recovering/Resolving]

NARRATIVE: CASE EVENT DATE: 201602
